FAERS Safety Report 15681277 (Version 2)
Quarter: 2019Q1

REPORT INFORMATION
  Report Type: Spontaneous
  Country: US (occurrence: US)
  Receive Date: 20181203
  Receipt Date: 20190107
  Transmission Date: 20190417
  Serious: Yes (Hospitalization, Other)
  Sender: FDA-Public Use
  Company Number: US-AEGERION PHARMACEUTICAL, INC-AEGR004021

PATIENT
  Age: 28 Year
  Sex: Female

DRUGS (12)
  1. LISINOPRIL. [Concomitant]
     Active Substance: LISINOPRIL
     Indication: CONGENITAL GENERALISED LIPODYSTROPHY
     Dosage: 40 MG,QD
     Route: 048
     Dates: start: 20150107
  2. LOVAZA [Concomitant]
     Active Substance: OMEGA-3-ACID ETHYL ESTERS
     Indication: CONGENITAL GENERALISED LIPODYSTROPHY
     Dosage: 2 CAPSULES, BID
     Route: 048
     Dates: start: 20150107
  3. FENOFIBRATE. [Concomitant]
     Active Substance: FENOFIBRATE
     Indication: PRODUCT USED FOR UNKNOWN INDICATION
     Dosage: 145 MG, QD
  4. MYALEPT [Suspect]
     Active Substance: METRELEPTIN
     Indication: CONGENITAL GENERALISED LIPODYSTROPHY
     Dosage: 4.9 MG, EVERY 12 HOURS
     Route: 058
     Dates: end: 2010
  5. MYALEPT [Suspect]
     Active Substance: METRELEPTIN
     Dosage: 4.9 MG, EVERY 12 HOURS
     Route: 058
     Dates: start: 2015
  6. MYALEPT [Suspect]
     Active Substance: METRELEPTIN
     Dosage: 4.9 MG, EVERY 12 HOURS
     Route: 058
     Dates: start: 2010, end: 2015
  7. HUMULIN R [Concomitant]
     Active Substance: INSULIN HUMAN
     Indication: CONGENITAL GENERALISED LIPODYSTROPHY
     Dosage: 50 UNITS, TID
     Route: 058
     Dates: start: 20170621
  8. GEMFIBROZIL. [Concomitant]
     Active Substance: GEMFIBROZIL
     Indication: CONGENITAL GENERALISED LIPODYSTROPHY
     Dosage: 600 MG, QD
     Route: 048
     Dates: start: 20150107
  9. AMLACTIN [Concomitant]
     Active Substance: AMMONIUM LACTATE
     Indication: CONGENITAL GENERALISED LIPODYSTROPHY
     Dosage: UNK, BID
     Dates: start: 20160408
  10. VITAMIN D                          /00107901/ [Concomitant]
     Active Substance: ERGOCALCIFEROL
     Indication: VITAMIN D DEFICIENCY
  11. METFORMIN HCL [Concomitant]
     Active Substance: METFORMIN HYDROCHLORIDE
     Indication: CONGENITAL GENERALISED LIPODYSTROPHY
     Dosage: 1000 MG, EVERY 12 HOURS
     Route: 048
     Dates: start: 20150107
  12. MULTIVITAMINS                      /07504101/ [Concomitant]
     Active Substance: VITAMINS
     Indication: PRODUCT USED FOR UNKNOWN INDICATION

REACTIONS (13)
  - Tooth infection [Unknown]
  - Injection site mass [Unknown]
  - Diabetes mellitus inadequate control [Recovering/Resolving]
  - Tooth abscess [Unknown]
  - Treatment noncompliance [Recovered/Resolved]
  - Therapy cessation [Recovered/Resolved]
  - Weight fluctuation [Unknown]
  - Blood pressure increased [Unknown]
  - Groin infection [Unknown]
  - Pancreatitis [Unknown]
  - Blood triglycerides increased [Unknown]
  - Sinusitis [Unknown]
  - Intentional product use issue [Recovered/Resolved]

NARRATIVE: CASE EVENT DATE: 2015
